FAERS Safety Report 19424055 (Version 3)
Quarter: 2021Q3

REPORT INFORMATION
  Report Type: Spontaneous
  Country: CA (occurrence: CA)
  Receive Date: 20210616
  Receipt Date: 20210831
  Transmission Date: 20211014
  Serious: Yes (Other)
  Sender: FDA-Public Use
  Company Number: CA-PFIZER INC-2020069190

PATIENT
  Age: 61 Year
  Sex: Male
  Weight: 80 kg

DRUGS (24)
  1. INLYTA [Suspect]
     Active Substance: AXITINIB
     Dosage: 3 MG, 2X/DAY
     Route: 048
     Dates: end: 20210602
  2. HYDROCORTISONE. [Concomitant]
     Active Substance: HYDROCORTISONE
     Dosage: 1 G, 2X/DAY (APPLY THIN LAYER TO AFFECTED AREAS (IF RASH DEVELOPS))
     Route: 061
     Dates: start: 20200903
  3. LOPRAMIDE [Concomitant]
     Dosage: 2 MG (2 TABS AT ONCE, THEN 1 TAB Q4H/ AFTER EVERY LOOSE BM)
     Route: 048
     Dates: start: 20200903
  4. TYLENOL EXTRA STRENGTH [Concomitant]
     Active Substance: ACETAMINOPHEN
     Indication: PAIN
     Dosage: UNK
  5. DIPHENHYDRAMINE HCL [Concomitant]
     Active Substance: DIPHENHYDRAMINE HYDROCHLORIDE
     Dosage: 25 MG, AS NEEDED (TAKE 1 TO 2 CAPSULE (25?50MG) EVERY 6 HOURS)
     Route: 048
     Dates: start: 20200903
  6. INLYTA [Suspect]
     Active Substance: AXITINIB
     Dosage: 5 MG, 2X/DAY
     Route: 048
     Dates: start: 20200813, end: 2020
  7. DIPHENHYDRAMINE HCL [Concomitant]
     Active Substance: DIPHENHYDRAMINE HYDROCHLORIDE
     Indication: PRURITUS
     Dosage: 25 MG, AS NEEDED (TAKE 1 TO 2 CAPSULE (25?50MG) EVERY 6 HOURS)
     Route: 048
     Dates: start: 20200813, end: 2020
  8. LOPRAMIDE [Concomitant]
     Dosage: 2 MG (2 TABS AT ONCE, THEN 1 TAB Q4H/ AFTER EVERY LOOSE BM)
     Route: 048
     Dates: start: 20200723, end: 2020
  9. PROCHLORPERAZINE MALEATE. [Concomitant]
     Active Substance: PROCHLORPERAZINE MALEATE
     Indication: NAUSEA
     Dosage: 10 MG (EVERY 4 TO 6 HOURS, AS REQUIRED)
     Route: 048
     Dates: start: 20200723, end: 2020
  10. PROCHLORPERAZINE MALEATE. [Concomitant]
     Active Substance: PROCHLORPERAZINE MALEATE
     Indication: VOMITING
     Dosage: 10 MG (EVERY 4 TO 6 HOURS, AS REQUIRED)
     Route: 048
     Dates: start: 20200813, end: 2020
  11. INLYTA [Suspect]
     Active Substance: AXITINIB
     Dosage: 5 MG, 2X/DAY
     Route: 048
     Dates: start: 20200723, end: 2020
  12. ATORVASTATIN [Concomitant]
     Active Substance: ATORVASTATIN
     Dosage: 20 MG, 1X/DAY
  13. PERINDOPRIL [Concomitant]
     Active Substance: PERINDOPRIL
     Dosage: 2 MG, 1X/DAY
  14. INLYTA [Suspect]
     Active Substance: AXITINIB
     Dosage: 5 MG, 2X/DAY
     Route: 048
     Dates: start: 20200903
  15. HYDROCORTISONE. [Concomitant]
     Active Substance: HYDROCORTISONE
     Indication: RASH
     Dosage: 1 G, 2X/DAY
     Dates: start: 20200723, end: 2020
  16. JENTADUETO [Concomitant]
     Active Substance: LINAGLIPTIN\METFORMIN HYDROCHLORIDE
     Dosage: 1000 MG
  17. PEMBROLIZUMAB. [Concomitant]
     Active Substance: PEMBROLIZUMAB
     Dosage: 200 MG, EVERY 3 WEEKS (Q3W)
  18. DIPHENHYDRAMINE HCL [Concomitant]
     Active Substance: DIPHENHYDRAMINE HYDROCHLORIDE
     Indication: RASH
     Dosage: 25 MG, AS NEEDED (TAKE 1 TO 2 CAPSULE (25?50MG) EVERY 6 HOURS)
     Route: 048
     Dates: start: 20200723, end: 2020
  19. JENTADUETO [Concomitant]
     Active Substance: LINAGLIPTIN\METFORMIN HYDROCHLORIDE
     Dosage: 2.5 MG
  20. LOPRAMIDE [Concomitant]
     Dosage: 2 MG (2 TABS AT ONCE, THEN 1 TAB Q4H/ AFTER EVERY LOOSE BM)
     Route: 048
     Dates: start: 20200813, end: 2020
  21. INLYTA [Suspect]
     Active Substance: AXITINIB
     Dosage: 5 MG, 2X/DAY
     Route: 048
     Dates: start: 20200521, end: 2020
  22. HYDROCORTISONE. [Concomitant]
     Active Substance: HYDROCORTISONE
     Dosage: 1 G, 2X/DAY (APPLY THIN LAYER TO AFFECTED AREAS (IF RASH DEVELOPS))
     Route: 061
     Dates: start: 20200813, end: 2020
  23. KEYTRUDA [Concomitant]
     Active Substance: PEMBROLIZUMAB
     Dosage: UNK
  24. PROCHLORPERAZINE MALEATE. [Concomitant]
     Active Substance: PROCHLORPERAZINE MALEATE
     Dosage: 10 MG (EVERY 4 TO 6 HOURS, AS REQUIRED)
     Route: 048
     Dates: start: 20200903

REACTIONS (5)
  - Neoplasm progression [Unknown]
  - Off label use [Unknown]
  - Proteinuria [Unknown]
  - Upper limb fracture [Unknown]
  - Weight fluctuation [Unknown]

NARRATIVE: CASE EVENT DATE: 2020
